FAERS Safety Report 4540356-2 (Version None)
Quarter: 2004Q4

REPORT INFORMATION
  Report Type: 
  Country: None (occurrence: None)
  Receive Date: 20041223
  Receipt Date: 20041215
  Transmission Date: 20050328
  Serious: Yes (Other)
  Sender: FDA-Public Use
  Company Number: 2004080722

PATIENT
  Age: 26 Year
  Sex: Male
  Weight: 80 kg

DRUGS (1)
  1. AZITHROMYCIN [Suspect]
     Indication: NASOPHARYNGITIS
     Dosage: 500 MG (500 MG, 1 IN 1 D), ORAL
     Route: 048
     Dates: start: 20041005, end: 20041006

REACTIONS (6)
  - BLOOD IMMUNOGLOBULIN A INCREASED [None]
  - CHEST PAIN [None]
  - DYSPNOEA [None]
  - INSOMNIA [None]
  - STRIDOR [None]
  - THERAPY NON-RESPONDER [None]
